FAERS Safety Report 13678837 (Version 3)
Quarter: 2017Q3

REPORT INFORMATION
  Report Type: Spontaneous
  Country: PL (occurrence: PL)
  Receive Date: 20170622
  Receipt Date: 20170907
  Transmission Date: 20171127
  Serious: Yes (Hospitalization)
  Sender: FDA-Public Use
  Company Number: PL-JNJFOC-20170620140

PATIENT
  Age: 51 Year
  Sex: Female

DRUGS (5)
  1. RIVAROXABAN [Suspect]
     Active Substance: RIVAROXABAN
     Indication: INTRACRANIAL VENOUS SINUS THROMBOSIS
     Route: 048
     Dates: start: 2014, end: 2015
  2. HYDROCHLOROTHIAZIDE. [Concomitant]
     Active Substance: HYDROCHLOROTHIAZIDE
     Indication: HYPERTENSION
     Route: 065
  3. LOSARTAN. [Concomitant]
     Active Substance: LOSARTAN
     Indication: HYPERTENSION
     Route: 065
  4. ETHINYLESTRADIOL W/GESTODENE [Concomitant]
     Active Substance: ETHINYL ESTRADIOL\GESTODENE
     Route: 065
  5. BISOPROLOL [Concomitant]
     Active Substance: BISOPROLOL
     Indication: HYPERTENSION
     Route: 065

REACTIONS (8)
  - Pain in extremity [Recovered/Resolved]
  - Off label use [Unknown]
  - Transverse sinus thrombosis [Recovering/Resolving]
  - Product use in unapproved indication [Unknown]
  - Hypercoagulation [Unknown]
  - Memory impairment [Not Recovered/Not Resolved]
  - Haemorrhagic cerebral infarction [Recovering/Resolving]
  - Superior sagittal sinus thrombosis [Recovering/Resolving]

NARRATIVE: CASE EVENT DATE: 2014
